FAERS Safety Report 11445146 (Version 1)
Quarter: 2015Q3

REPORT INFORMATION
  Report Type: Spontaneous
  Country: US (occurrence: None)
  Receive Date: 20150901
  Receipt Date: 20150901
  Transmission Date: 20151125
  Serious: Yes (Other)
  Sender: FDA-Public Use
  Company Number: None

PATIENT
  Age: 42 Year
  Sex: Female
  Weight: 45.81 kg

DRUGS (3)
  1. BUTRANS [Concomitant]
     Active Substance: BUPRENORPHINE
  2. NORCO [Suspect]
     Active Substance: ACETAMINOPHEN\HYDROCODONE BITARTRATE
     Indication: PAIN
     Dosage: TAKEN BY MOUTH
     Dates: start: 20150828, end: 20150829
  3. NORCO [Suspect]
     Active Substance: ACETAMINOPHEN\HYDROCODONE BITARTRATE
     Indication: NERVE INJURY
     Dosage: TAKEN BY MOUTH
     Dates: start: 20150828, end: 20150829

REACTIONS (4)
  - Product solubility abnormal [None]
  - Drug effect decreased [None]
  - Vomiting [None]
  - Product substitution issue [None]

NARRATIVE: CASE EVENT DATE: 20150829
